FAERS Safety Report 4510848-0 (Version None)
Quarter: 2004Q4

REPORT INFORMATION
  Report Type: 
  Country: None (occurrence: None)
  Receive Date: 20041124
  Receipt Date: 20041116
  Transmission Date: 20050328
  Serious: Yes (Hospitalization)
  Sender: FDA-Public Use
  Company Number: FR-MERCK-0411FRA00066

PATIENT
  Age: 58 Year
  Sex: Male

DRUGS (5)
  1. VIOXX [Suspect]
     Indication: BACK PAIN
     Route: 048
     Dates: start: 20040801, end: 20040901
  2. NEBIVOLOL [Suspect]
     Indication: HYPERTENSION
     Route: 048
     Dates: start: 20040101, end: 20040901
  3. CYAMEMAZINE [Suspect]
     Indication: DEPRESSION
     Route: 048
     Dates: end: 20040901
  4. PAROXETINE HYDROCHLORIDE [Suspect]
     Indication: DEPRESSION
     Route: 048
     Dates: end: 20040901
  5. CLONAZEPAM [Suspect]
     Route: 048
     Dates: start: 20040401, end: 20040901

REACTIONS (1)
  - HEPATITIS CHOLESTATIC [None]
